FAERS Safety Report 5059768-6 (Version None)
Quarter: 2006Q3

REPORT INFORMATION
  Report Type: 
  Country: None (occurrence: None)
  Receive Date: 20060724
  Receipt Date: 20060712
  Transmission Date: 20061208
  Serious: Yes (Other)
  Sender: FDA-Public Use
  Company Number: GB-JNJFOC-20050403627

PATIENT
  Age: 65 Year
  Sex: Female

DRUGS (3)
  1. SPORANOX [Suspect]
     Indication: FUNGAL INFECTION
     Route: 065
     Dates: end: 20050201
  2. LAMISIL [Suspect]
     Indication: DRUG USE FOR UNKNOWN INDICATION
     Route: 065
  3. FELODIPINE [Concomitant]
     Route: 065

REACTIONS (5)
  - DYSPNOEA [None]
  - FATIGUE [None]
  - GASTROOESOPHAGEAL REFLUX DISEASE [None]
  - GENERALISED OEDEMA [None]
  - STOMACH DISCOMFORT [None]
